FAERS Safety Report 10951982 (Version 1)
Quarter: 2015Q1

REPORT INFORMATION
  Report Type: Spontaneous
  Country: US (occurrence: US)
  Receive Date: 20150325
  Receipt Date: 20150325
  Transmission Date: 20150721
  Serious: Yes (Other)
  Sender: FDA-Public Use
  Company Number: US-CIPLA LTD.-2015US02641

PATIENT

DRUGS (2)
  1. PHENCYCLIDINE [Suspect]
     Active Substance: PHENCYCLIDINE
  2. RISPERIDONE. [Suspect]
     Active Substance: RISPERIDONE
     Indication: MAJOR DEPRESSION
     Dosage: 2.25

REACTIONS (2)
  - Exposure during pregnancy [Unknown]
  - Gestational hypertension [Unknown]
